FAERS Safety Report 6674839-6 (Version None)
Quarter: 2010Q2

REPORT INFORMATION
  Report Type: 
  Country: None (occurrence: None)
  Receive Date: 20100409
  Receipt Date: 20100330
  Transmission Date: 20101027
  Serious: Yes (Other)
  Sender: FDA-Public Use
  Company Number: JP-JNJFOC-20100301562

PATIENT
  Age: 80 Year
  Sex: Female

DRUGS (1)
  1. DORIPENEM MONOHYDRATE [Suspect]
     Indication: SEPSIS
     Route: 041

REACTIONS (1)
  - CONVULSION [None]
